FAERS Safety Report 25825826 (Version 1)
Quarter: 2025Q3

REPORT INFORMATION
  Report Type: Spontaneous
  Country: CN (occurrence: CN)
  Receive Date: 20250919
  Receipt Date: 20250919
  Transmission Date: 20251021
  Serious: Yes (Hospitalization)
  Sender: ELI LILLY AND COMPANY
  Company Number: CN-Merck Healthcare KGaA-2025045812

PATIENT
  Age: 89 Year
  Sex: Male
  Weight: 55 kg

DRUGS (2)
  1. ERBITUX [Suspect]
     Active Substance: CETUXIMAB
     Indication: Keratinising squamous cell carcinoma of nasopharynx
     Route: 041
     Dates: start: 20250723, end: 20250723
  2. CISPLATIN [Suspect]
     Active Substance: CISPLATIN
     Indication: Keratinising squamous cell carcinoma of nasopharynx
     Dosage: 120 MG, DAILY
     Route: 041
     Dates: start: 20250723, end: 20250723

REACTIONS (1)
  - Myelosuppression [Recovering/Resolving]

NARRATIVE: CASE EVENT DATE: 20250807
